FAERS Safety Report 17227010 (Version 2)
Quarter: 2020Q1

REPORT INFORMATION
  Report Type: Report from Study
  Country: None (occurrence: BR)
  Receive Date: 20200103
  Receipt Date: 20200108
  Transmission Date: 20200409
  Serious: Yes (Hospitalization, Other)
  Sender: FDA-Public Use
  Company Number: BR-ABBVIE-19K-020-3213535-00

PATIENT
  Age: 63 Year
  Sex: Female
  Weight: 84 kg

DRUGS (3)
  1. HUMIRA [Suspect]
     Active Substance: ADALIMUMAB
     Indication: RHEUMATOID ARTHRITIS
     Route: 058
     Dates: start: 20190703, end: 2019
  2. TRAMAL [Concomitant]
     Active Substance: TRAMADOL
     Indication: SPINAL DISORDER
  3. MORPHINE [Suspect]
     Active Substance: MORPHINE
     Indication: SPINAL PAIN
     Route: 058

REACTIONS (19)
  - Pneumonia [Recovered/Resolved]
  - Lung disorder [Recovering/Resolving]
  - C-reactive protein increased [Unknown]
  - Joint swelling [Recovering/Resolving]
  - Pleural effusion [Recovered/Resolved]
  - Pain [Recovered/Resolved]
  - Back pain [Unknown]
  - Shock [Unknown]
  - Pulmonary pain [Unknown]
  - Mobility decreased [Not Recovered/Not Resolved]
  - Secretion discharge [Unknown]
  - Headache [Recovered/Resolved]
  - Pain in extremity [Unknown]
  - Therapeutic product effect decreased [Unknown]
  - Pollakiuria [Unknown]
  - Catarrh [Unknown]
  - Bedridden [Unknown]
  - Asthenia [Not Recovered/Not Resolved]
  - Platelet count increased [Unknown]

NARRATIVE: CASE EVENT DATE: 2019
